FAERS Safety Report 23580116 (Version 2)
Quarter: 2024Q1

REPORT INFORMATION
  Report Type: Spontaneous
  Country: US (occurrence: US)
  Receive Date: 20240229
  Receipt Date: 20240314
  Transmission Date: 20240410
  Serious: Yes (Death)
  Sender: FDA-Public Use
  Company Number: US-BIOGEN-2024BI01252687

PATIENT
  Sex: Male

DRUGS (20)
  1. TECFIDERA [Suspect]
     Active Substance: DIMETHYL FUMARATE
     Indication: Multiple sclerosis
     Route: 050
     Dates: start: 20161031
  2. TECFIDERA [Suspect]
     Active Substance: DIMETHYL FUMARATE
     Route: 050
  3. TECFIDERA [Suspect]
     Active Substance: DIMETHYL FUMARATE
     Route: 050
  4. TRAZODONE [Concomitant]
     Active Substance: TRAZODONE HYDROCHLORIDE
     Indication: Product used for unknown indication
     Dosage: TRAZODONE 100MG TAB TAKE 1 TO 2 TABLETS BY MOUTH EVERY NIGHT AT BEDTIME
     Route: 050
  5. TAMSULOSIN [Concomitant]
     Active Substance: TAMSULOSIN
     Indication: Product used for unknown indication
     Dosage: TAMSULOSIN 0.4MG CAP  TAKE 1 CAPSULE BY MOUTH TWICE A DAY
     Route: 050
  6. NITROGLYCERIN [Concomitant]
     Active Substance: NITROGLYCERIN
     Indication: Product used for unknown indication
     Dosage: NITROGLYCERIN 0.4 MG SUBLINGUAL TABLET  AS NEEDED (PRN)
     Route: 050
  7. PEPCID AC [Concomitant]
     Active Substance: FAMOTIDINE
     Indication: Product used for unknown indication
     Dosage: PEPCID AC 10 MG TABLET 1 TABLET BY MOUTH DAILY
     Route: 050
  8. BISACODYL [Concomitant]
     Active Substance: BISACODYL
     Indication: Product used for unknown indication
     Dosage: LAXATIVE (BISACODYL) 5 MG TABLET 2 TABLET BY MOUTH DAILY
     Route: 050
  9. BENADRYL ALLERGY [Concomitant]
     Active Substance: DIPHENHYDRAMINE HYDROCHLORIDE
     Indication: Product used for unknown indication
     Dosage: BENADRYL ALLERGY 25 MG TABLET 1 TABLET BY MOUTH DAILY
     Route: 050
  10. Artificial Tears [Concomitant]
     Indication: Product used for unknown indication
     Dosage: ARTIFICIAL TEARS (PF) DROPS IN A DROPPERETTE 1 DROP IN BOTH EYES DAILY AS NEEDED (PRN)
     Route: 050
  11. TYLENOL 8HR [Concomitant]
     Active Substance: ACETAMINOPHEN
     Indication: Product used for unknown indication
     Dosage: TYLENOL 8 HOUR 650 MG TABLET, EXTENDED RELEASE 1 TABLET BY MOUTH EVERY 8 HOURS AS NEEDED?(PRN)
     Route: 050
  12. COLACE [Concomitant]
     Active Substance: DOCUSATE SODIUM
     Indication: Product used for unknown indication
     Dosage: COLACE 100 MG CAPSULE, 1 CAPSULE BY MOUTH DAILY
     Route: 050
  13. METOPROLOL TARTRATE [Concomitant]
     Active Substance: METOPROLOL TARTRATE
     Indication: Product used for unknown indication
     Dosage: METOPROLOL TARTRATE 50 MG TABLET 1 TABLET BY MOUTH EVERY 8 HOURS
     Route: 050
  14. FUROSEMIDE [Concomitant]
     Active Substance: FUROSEMIDE
     Indication: Product used for unknown indication
     Dosage: FUROSEMIDE 20 MG TABLET  1 TABLET BY MOUTH TWICE A DAY
     Route: 050
  15. ENOXAPARIN [Concomitant]
     Active Substance: ENOXAPARIN
     Indication: Product used for unknown indication
     Dosage: ENOXAPARIN 40 MG/0.4 ML SUBCUTANEOUS SYRINGE
     Route: 050
  16. CYCLOBENZAPRINE [Concomitant]
     Active Substance: CYCLOBENZAPRINE
     Indication: Product used for unknown indication
     Dosage: CYCLOBENZAPRINE 10 MG TABLET
     Route: 050
  17. CORLANOR [Concomitant]
     Active Substance: IVABRADINE HYDROCHLORIDE
     Indication: Product used for unknown indication
     Dosage: CORLANOR 7.5 MG TABLET 1 TABLET BY MOUTH TWICE A DAY
     Route: 050
  18. BACLOFEN [Concomitant]
     Active Substance: BACLOFEN
     Indication: Product used for unknown indication
     Dosage: 40,000 MCG/20 ML (2,000 MCG/ML) INTRATHECAL SOLUTION
     Route: 050
  19. IBUPROFEN [Concomitant]
     Active Substance: IBUPROFEN
     Indication: Product used for unknown indication
     Dosage: 03/13/2018 IBUPROFEN 800 MG TABLET
     Route: 050
  20. TRAMADOL [Concomitant]
     Active Substance: TRAMADOL\TRAMADOL HYDROCHLORIDE
     Indication: Product used for unknown indication
     Dosage: TRAMADOL 50 MG TABLET
     Route: 050

REACTIONS (1)
  - Death [Fatal]
